FAERS Safety Report 16462939 (Version 3)
Quarter: 2019Q3

REPORT INFORMATION
  Report Type: Spontaneous
  Country: JP (occurrence: JP)
  Receive Date: 20190621
  Receipt Date: 20190930
  Transmission Date: 20191004
  Serious: Yes (Other)
  Sender: FDA-Public Use
  Company Number: JP-GLAXOSMITHKLINE-JP2019JPN108827

PATIENT
  Age: 46 Year
  Sex: Female

DRUGS (2)
  1. SINGULAIR TABLETS [Concomitant]
     Indication: ASTHMA
     Dosage: 1 G, UNK
     Route: 048
  2. SERETIDE [Suspect]
     Active Substance: FLUTICASONE PROPIONATE\SALMETEROL XINAFOATE
     Indication: ASTHMA
     Dosage: 500 ?G, BID
     Route: 055
     Dates: end: 20160402

REACTIONS (6)
  - Pyrexia [Recovered/Resolved]
  - Uterine leiomyoma [Unknown]
  - Cough [Recovered/Resolved]
  - Pneumonia [Recovered/Resolved]
  - Cough [Recovered/Resolved]
  - Pyrexia [Recovered/Resolved]

NARRATIVE: CASE EVENT DATE: 20161129
